FAERS Safety Report 4784124-5 (Version None)
Quarter: 2005Q3

REPORT INFORMATION
  Report Type: 
  Country: None (occurrence: None)
  Receive Date: 20050930
  Receipt Date: 20050706
  Transmission Date: 20060218
  Serious: Yes (Other)
  Sender: FDA-Public Use
  Company Number: US-GLAXOSMITHKLINE-A0565175A

PATIENT
  Age: 27 Year
  Sex: Female

DRUGS (4)
  1. FLOVENT [Suspect]
     Indication: ASTHMA
     Dosage: 2PUFF TWICE PER DAY
     Route: 055
     Dates: start: 20050501
  2. SINGULAIR [Concomitant]
  3. ALBUTEROL [Concomitant]
  4. ZYRTEC [Concomitant]

REACTIONS (1)
  - ASTHMA [None]
